FAERS Safety Report 7122922-3 (Version None)
Quarter: 2010Q4

REPORT INFORMATION
  Report Type: 
  Country: None (occurrence: None)
  Receive Date: 20101124
  Receipt Date: 20101118
  Transmission Date: 20110411
  Serious: Yes (Hospitalization)
  Sender: FDA-Public Use
  Company Number: BE-ROCHE-737480

PATIENT
  Sex: Male
  Weight: 39 kg

DRUGS (5)
  1. ROACTEMRA [Suspect]
     Route: 042
     Dates: start: 20090801, end: 20100901
  2. ROACTEMRA [Suspect]
     Route: 042
     Dates: start: 20101025
  3. PREDNISOLONE [Concomitant]
     Route: 048
     Dates: start: 19950101
  4. METHOTREXATE [Concomitant]
     Route: 048
     Dates: start: 19950101
  5. FOLIC ACID [Concomitant]
     Indication: PROPHYLAXIS
     Route: 048
     Dates: start: 19950101

REACTIONS (5)
  - COUGH [None]
  - HEADACHE [None]
  - INFLUENZA LIKE ILLNESS [None]
  - NASAL CONGESTION [None]
  - PYREXIA [None]
